FAERS Safety Report 6238879-3 (Version None)
Quarter: 2009Q2

REPORT INFORMATION
  Report Type: 
  Country: None (occurrence: None)
  Receive Date: 20090618
  Receipt Date: 20090608
  Transmission Date: 20091009
  Serious: Yes (Hospitalization, Other)
  Sender: FDA-Public Use
  Company Number: VISP-NO-0906L-0255

PATIENT
  Age: 65 Year
  Sex: Male
  Weight: 70 kg

DRUGS (10)
  1. VISIPAQUE [Suspect]
     Indication: CHEST PAIN
     Dosage: 250 ML, SINGLE DOSE, I.A.
     Route: 013
  2. CLOPIDOGREL [Concomitant]
  3. ASPIRIN [Concomitant]
  4. FUROSEMIDE INTENSOL [Concomitant]
  5. ISOSORBIDE MONONITRATE [Concomitant]
  6. CARVEDILOL [Concomitant]
  7. PERINDOPRIL [Concomitant]
  8. PRAVASTATIN [Concomitant]
  9. METFORMIN [Concomitant]
  10. OMEPRAZOLE [Concomitant]

REACTIONS (7)
  - BLOOD CREATININE INCREASED [None]
  - DIALYSIS [None]
  - HAEMOGLOBIN DECREASED [None]
  - METABOLIC ACIDOSIS [None]
  - OLIGURIA [None]
  - OPERATIVE HAEMORRHAGE [None]
  - PULMONARY CONGESTION [None]
